FAERS Safety Report 5255149-0 (Version None)
Quarter: 2007Q1

REPORT INFORMATION
  Report Type: 
  Country: None (occurrence: None)
  Receive Date: 20070228
  Receipt Date: 20070216
  Transmission Date: 20070707
  Serious: Yes (Death, Other)
  Sender: FDA-Public Use
  Company Number: 2007EU000431

PATIENT
  Age: 64 Year
  Sex: Female

DRUGS (4)
  1. PROGRAF [Suspect]
     Indication: UVEITIS
     Dosage: SEE IMAGE
     Route: 048
     Dates: start: 20011016, end: 20020417
  2. PROGRAF [Suspect]
     Indication: UVEITIS
     Dosage: SEE IMAGE
     Route: 048
     Dates: start: 20020418
  3. PREDNISOLONE [Concomitant]
  4. CYCLOSPORINE [Concomitant]

REACTIONS (1)
  - METASTASES TO LIVER [None]
